FAERS Safety Report 7719723-1 (Version None)
Quarter: 2011Q3

REPORT INFORMATION
  Report Type: 
  Country: None (occurrence: None)
  Receive Date: 20110830
  Receipt Date: 20110818
  Transmission Date: 20111222
  Serious: Yes (Other)
  Sender: FDA-Public Use
  Company Number: US-BAYER-200936464NA

PATIENT
  Age: 78 Year
  Sex: Female
  Weight: 78 kg

DRUGS (47)
  1. MULTIHANCE [Suspect]
     Indication: PRODUCT USED FOR UNKNOWN INDICATION
     Dates: start: 20070208
  2. GADOLINIUM IN UNSPECIFIED DRUG [Suspect]
     Indication: VENOGRAM
     Dosage: UNK
     Dates: start: 20050915
  3. GADOLINIUM IN UNSPECIFIED DRUG [Suspect]
     Dosage: UNK
     Dates: start: 20011109, end: 20011109
  4. OPTIMARK [Suspect]
     Indication: PRODUCT USED FOR UNKNOWN INDICATION
  5. GADOLINIUM IN UNSPECIFIED DRUG [Suspect]
     Indication: FISTULOGRAM
     Dosage: UNK
     Dates: start: 20000919
  6. GADOLINIUM IN UNSPECIFIED DRUG [Suspect]
  7. COUMADIN [Concomitant]
  8. CARDURA [Concomitant]
  9. GADOLINIUM IN UNSPECIFIED DRUG [Suspect]
     Indication: ANGIOGRAM
     Dosage: 26 ML, ONCE
     Dates: start: 20070517, end: 20070517
  10. GADOLINIUM IN UNSPECIFIED DRUG [Suspect]
     Dosage: UNK
     Dates: start: 20000920, end: 20000920
  11. GADOLINIUM IN UNSPECIFIED DRUG [Suspect]
     Dosage: UNK
     Dates: start: 20030207, end: 20030207
  12. GADOLINIUM IN UNSPECIFIED DRUG [Suspect]
  13. GADOLINIUM IN UNSPECIFIED DRUG [Suspect]
     Dosage: UNK
     Dates: start: 20030819, end: 20030819
  14. CARDIZEM CD [Concomitant]
  15. NORVASC [Concomitant]
  16. CATAPRES-TTS-1 [Concomitant]
  17. METOPROLOL SUCCINATE [Concomitant]
  18. OMNISCAN [Suspect]
     Indication: PRODUCT USED FOR UNKNOWN INDICATION
     Dates: start: 20050915
  19. PROHANCE [Suspect]
     Indication: PRODUCT USED FOR UNKNOWN INDICATION
  20. GADOLINIUM IN UNSPECIFIED DRUG [Suspect]
     Dosage: 30 ML, ONCE
     Dates: start: 20070920, end: 20070920
  21. GADOLINIUM IN UNSPECIFIED DRUG [Suspect]
     Dosage: UNK
     Dates: start: 20030520, end: 20030520
  22. GADOLINIUM IN UNSPECIFIED DRUG [Suspect]
     Dosage: UNK
     Dates: start: 20050915, end: 20050915
  23. METOPROLOL TARTRATE [Concomitant]
  24. MULTIHANCE [Suspect]
     Dates: start: 20070920
  25. COZAAR [Concomitant]
  26. FERROUS SULFATE TAB [Concomitant]
  27. DEXAMETHASONE [Concomitant]
  28. PREDNISONE [Concomitant]
  29. MULTIHANCE [Suspect]
     Dates: start: 20070517
  30. GADOLINIUM IN UNSPECIFIED DRUG [Suspect]
     Dosage: UNK
     Dates: start: 20040810, end: 20040810
  31. EPOGEN [Concomitant]
  32. LASIX [Concomitant]
  33. ZOCOR [Concomitant]
  34. VENOFER [Concomitant]
  35. GADOLINIUM IN UNSPECIFIED DRUG [Suspect]
     Dosage: UNK
     Dates: start: 20040506, end: 20040506
  36. GADOLINIUM IN UNSPECIFIED DRUG [Suspect]
     Dosage: UNK
     Dates: start: 20050222, end: 20050222
  37. GADOLINIUM IN UNSPECIFIED DRUG [Suspect]
     Dosage: UNK
     Dates: start: 20050602, end: 20050602
  38. GADOLINIUM IN UNSPECIFIED DRUG [Suspect]
     Dosage: UNK
     Dates: start: 20060705, end: 20060705
  39. DIGOXIN [Concomitant]
  40. NITROGLYCERIN [Concomitant]
  41. ADVAIR DISKUS 100/50 [Concomitant]
  42. NEPHROVITE [VIT C,VIT H,B5,B12,B9,B3,B6,B2,B1 HCL] [Concomitant]
  43. SIMAVASTATIN [Concomitant]
  44. GADOLINIUM IN UNSPECIFIED DRUG [Suspect]
     Indication: NUCLEAR MAGNETIC RESONANCE IMAGING
     Dosage: 40 ML, ONCE
     Dates: start: 20070208
  45. GADOLINIUM IN UNSPECIFIED DRUG [Suspect]
     Dosage: UNK
     Dates: start: 20020801, end: 20020801
  46. PHOSLO [Concomitant]
  47. ASPIRIN [Concomitant]

REACTIONS (13)
  - FLUID RETENTION [None]
  - OEDEMA PERIPHERAL [None]
  - SKIN INDURATION [None]
  - SWELLING [None]
  - SKIN HYPERTROPHY [None]
  - NEPHROGENIC SYSTEMIC FIBROSIS [None]
  - SCAR [None]
  - RASH [None]
  - DRY SKIN [None]
  - PAIN [None]
  - SKIN TIGHTNESS [None]
  - SKIN HYPOPIGMENTATION [None]
  - SKIN PLAQUE [None]
